FAERS Safety Report 8439780-7 (Version None)
Quarter: 2012Q2

REPORT INFORMATION
  Report Type: 
  Country: None (occurrence: None)
  Receive Date: 20120611
  Receipt Date: 20120611
  Transmission Date: 20120825
  Serious: Yes (Hospitalization, Other)
  Sender: FDA-Public Use
  Company Number: None

PATIENT
  Age: 63 Year
  Sex: Female
  Weight: 32.2 kg

DRUGS (1)
  1. TRIBENZOR [Suspect]
     Indication: HYPERTENSION
     Dosage: ONE TABLET ONCE DAILY PO
     Route: 048
     Dates: start: 20120608, end: 20120608

REACTIONS (5)
  - SYNCOPE [None]
  - LETHARGY [None]
  - VOMITING [None]
  - HYPERHIDROSIS [None]
  - ATRIOVENTRICULAR BLOCK FIRST DEGREE [None]
